FAERS Safety Report 12668667 (Version 1)
Quarter: 2016Q3

REPORT INFORMATION
  Report Type: Spontaneous
  Country: US (occurrence: US)
  Receive Date: 20160819
  Receipt Date: 20160819
  Transmission Date: 20161109
  Serious: Yes (Other)
  Sender: FDA-Public Use
  Company Number: US-UNITED THERAPEUTICS-UNT-2016-012845

PATIENT
  Age: 84 Year
  Sex: Female
  Weight: 45.35 kg

DRUGS (1)
  1. REMODULIN [Suspect]
     Active Substance: TREPROSTINIL
     Indication: PULMONARY ARTERIAL HYPERTENSION
     Dosage: 0.045 ?G/KG, CONTINUING
     Route: 041
     Dates: start: 20090106

REACTIONS (7)
  - Agitation [Unknown]
  - Catatonia [Unknown]
  - Weight decreased [Unknown]
  - Hallucination [Unknown]
  - Anxiety [Unknown]
  - Hypersomnia [Unknown]
  - Lethargy [Unknown]

NARRATIVE: CASE EVENT DATE: 201608
